FAERS Safety Report 10039624 (Version 2)
Quarter: 2014Q1

REPORT INFORMATION
  Report Type: Spontaneous
  Country: CA (occurrence: CA)
  Receive Date: 20140326
  Receipt Date: 20140326
  Transmission Date: 20141002
  Serious: Yes (Death, Hospitalization, Other)
  Sender: FDA-Public Use
  Company Number: CA-BAXTER-2014BAX013606

PATIENT
  Age: 84 Year
  Sex: Male

DRUGS (4)
  1. DIANEAL PD4 SOLUTION WITH 1.5% DEXTROSE AND 2.5 MEQ/L CALCIUM [Suspect]
     Indication: RENAL DISORDER
     Route: 033
     Dates: start: 2010, end: 20140223
  2. DIANEAL PD4 SOLUTION WITH 2.5% DEXTROSE AND 2.5 MEQ/L CALCIUM [Suspect]
     Indication: RENAL DISORDER
     Route: 033
     Dates: start: 2010, end: 20140223
  3. EXTRANEAL [Suspect]
     Indication: RENAL DISORDER
     Route: 033
     Dates: start: 2010, end: 20140223
  4. NUTRINEAL PD4 1.1% AMINO ACID PERITONEAL DIALYSIS SOLUTION [Suspect]
     Indication: RENAL DISORDER
     Route: 033
     Dates: start: 2010, end: 20140223

REACTIONS (3)
  - Nephropathy toxic [Fatal]
  - Bone cancer [Not Recovered/Not Resolved]
  - Delirium [Recovered/Resolved]
